FAERS Safety Report 22382677 (Version 1)
Quarter: 2023Q2

REPORT INFORMATION
  Report Type: Spontaneous
  Country: FR (occurrence: FR)
  Receive Date: 20230530
  Receipt Date: 20230530
  Transmission Date: 20230721
  Serious: Yes (Hospitalization)
  Sender: FDA-Public Use
  Company Number: FR-MYLANLABS-2023M1056066

PATIENT
  Age: 79 Year
  Sex: Male

DRUGS (3)
  1. FLUOROURACIL [Suspect]
     Active Substance: FLUOROURACIL
     Indication: Colon cancer metastatic
     Dosage: UNK
     Route: 065
  2. OXALIPLATIN [Suspect]
     Active Substance: OXALIPLATIN
     Indication: Colon cancer metastatic
     Dosage: UNK
     Route: 065
  3. LEUCOVORIN [Suspect]
     Active Substance: LEUCOVORIN
     Indication: Colon cancer metastatic
     Dosage: UNK
     Route: 065

REACTIONS (1)
  - Drug ineffective [Unknown]
